FAERS Safety Report 25683317 (Version 1)
Quarter: 2025Q3

REPORT INFORMATION
  Report Type: Spontaneous
  Country: CL (occurrence: CL)
  Receive Date: 20250814
  Receipt Date: 20250814
  Transmission Date: 20251021
  Serious: Yes (Hospitalization)
  Sender: BIOMARIN
  Company Number: CL-BIOMARINAP-CL-2025-168042

PATIENT
  Age: 9 Year
  Sex: Male
  Weight: 20.2 kg

DRUGS (1)
  1. NAGLAZYME [Suspect]
     Active Substance: GALSULFASE
     Indication: Mucopolysaccharidosis VI
     Dosage: UNK, QW

REACTIONS (4)
  - Otorrhoea [Recovering/Resolving]
  - Cough [Recovering/Resolving]
  - Ear pain [Recovering/Resolving]
  - Pyrexia [Recovering/Resolving]

NARRATIVE: CASE EVENT DATE: 20250808
